FAERS Safety Report 21486848 (Version 1)
Quarter: 2022Q4

REPORT INFORMATION
  Report Type: Report from Study
  Country: ES (occurrence: ES)
  Receive Date: 20221020
  Receipt Date: 20221020
  Transmission Date: 20230112
  Serious: Yes (Other)
  Sender: FDA-Public Use
  Company Number: ES-TAKEDA-2022TUS074197

PATIENT
  Age: 56 Year
  Sex: Male
  Weight: 71.6 kg

DRUGS (1)
  1. BRIGATINIB [Suspect]
     Active Substance: BRIGATINIB
     Indication: Non-small cell lung cancer
     Dosage: 180 MILLIGRAM
     Route: 048

REACTIONS (1)
  - Eczema impetiginous [Unknown]

NARRATIVE: CASE EVENT DATE: 20221013
